FAERS Safety Report 21352718 (Version 2)
Quarter: 2022Q3

REPORT INFORMATION
  Report Type: Other
  Country: GB (occurrence: None)
  Receive Date: 20220920
  Receipt Date: 20220922
  Transmission Date: 20221026
  Serious: Yes (Hospitalization, Other)
  Sender: FDA-Public Use
  Company Number: GB-ROCHE-3181384

PATIENT
  Age: 28 Year
  Sex: Female

DRUGS (5)
  1. MYCOPHENOLATE MOFETIL [Suspect]
     Active Substance: MYCOPHENOLATE MOFETIL
     Indication: Lupus nephritis
     Route: 065
  2. MYCOPHENOLATE MOFETIL [Suspect]
     Active Substance: MYCOPHENOLATE MOFETIL
     Indication: Central nervous system lupus
  3. PREDNISOLONE [Suspect]
     Active Substance: PREDNISOLONE
     Indication: Lupus nephritis
     Route: 042
  4. PREDNISOLONE [Suspect]
     Active Substance: PREDNISOLONE
     Indication: Central nervous system lupus
     Route: 048
  5. HYDROXYCHLOROQUINE [Concomitant]
     Active Substance: HYDROXYCHLOROQUINE

REACTIONS (6)
  - Immune reconstitution inflammatory syndrome [Unknown]
  - JC virus infection [Unknown]
  - Progressive multifocal leukoencephalopathy [Unknown]
  - Opportunistic infection [Unknown]
  - Neoplasm malignant [Unknown]
  - Lymphopenia [Unknown]
